FAERS Safety Report 20375086 (Version 1)
Quarter: 2022Q1

REPORT INFORMATION
  Report Type: Report from Study
  Country: US (occurrence: None)
  Receive Date: 20220125
  Receipt Date: 20220125
  Transmission Date: 20220423
  Serious: Yes (Hospitalization, Other)
  Sender: FDA-Public Use
  Company Number: 2022A033143

PATIENT
  Age: 703 Month
  Sex: Male
  Weight: 67.1 kg

DRUGS (2)
  1. DOXIL [Suspect]
     Active Substance: DOXORUBICIN HYDROCHLORIDE
     Indication: Salivary gland cancer
     Dosage: CYCLE 1 AND 2: 50 MG/M2 IV ON DAY 1; CYCLE 3 +: 50 MG/M2 IV ON DAY 1
     Route: 042
     Dates: start: 20210915, end: 20211012
  2. DURVALUMAB [Suspect]
     Active Substance: DURVALUMAB
     Indication: Salivary gland cancer
     Dosage: CYCLE 1 AND 2: 750 MG IV ON DAYS 8 AND 22; CYCLE 3 +: 1500 MG IV ON DAY 1
     Route: 042
     Dates: start: 20211214, end: 20211214

REACTIONS (6)
  - Febrile neutropenia [Recovering/Resolving]
  - Headache [Recovered/Resolved]
  - Hypertension [Recovered/Resolved]
  - Neutrophil count decreased [Recovering/Resolving]
  - Herpes zoster [Recovering/Resolving]
  - White blood cell count decreased [Recovering/Resolving]

NARRATIVE: CASE EVENT DATE: 20211231
